FAERS Safety Report 4956137-1 (Version None)
Quarter: 2006Q1

REPORT INFORMATION
  Report Type: 
  Country: None (occurrence: None)
  Receive Date: 20060201
  Receipt Date: 20051031
  Transmission Date: 20060701
  Serious: No
  Sender: FDA-Public Use
  Company Number: 2005PV004368

PATIENT
  Age: 60 Year
  Sex: Female
  Weight: 89.3586 kg

DRUGS (8)
  1. BYETTA [Suspect]
     Indication: DIABETES MELLITUS NON-INSULIN-DEPENDENT
     Dosage: 5 MCG;BID;SC
     Route: 058
     Dates: start: 20051025
  2. LOPRESSOR [Concomitant]
  3. LIPITOR [Concomitant]
  4. AMITRIPTYLINE [Concomitant]
  5. LEVOTHYROXINE SODIUM [Concomitant]
  6. ZOLOFT [Concomitant]
  7. PENTA-TRIAMTERENE HCTZ [Concomitant]
  8. LISINOPRIL [Concomitant]

REACTIONS (5)
  - ABDOMINAL DISTENSION [None]
  - BLOOD GLUCOSE INCREASED [None]
  - DYSPEPSIA [None]
  - FEELING JITTERY [None]
  - WEIGHT DECREASED [None]
